FAERS Safety Report 15534180 (Version 1)
Quarter: 2018Q4

REPORT INFORMATION
  Report Type: Spontaneous
  Country: TR (occurrence: TR)
  Receive Date: 20181019
  Receipt Date: 20181019
  Transmission Date: 20190205
  Serious: Yes (Life-Threatening)
  Sender: FDA-Public Use
  Company Number: TR-LPDUSPRD-20181897

PATIENT
  Age: 62 Year
  Sex: Male

DRUGS (4)
  1. PANTO [Concomitant]
     Active Substance: PANTOPRAZOLE SODIUM
     Dosage: 40 MG
     Route: 065
  2. PLETAL [Concomitant]
     Active Substance: CILOSTAZOL
     Dosage: 100 MG
     Route: 065
     Dates: start: 20180920
  3. GLIFOR [Concomitant]
     Active Substance: METFORMIN HYDROCHLORIDE
     Dosage: 1000 MG
     Route: 065
  4. VENOFER [Suspect]
     Active Substance: IRON SUCROSE
     Dosage: 1000 MG
     Route: 042
     Dates: start: 20180920

REACTIONS (3)
  - Asphyxia [Unknown]
  - Respiratory distress [Unknown]
  - Loss of consciousness [Unknown]

NARRATIVE: CASE EVENT DATE: 20180920
